FAERS Safety Report 5672749-4 (Version None)
Quarter: 2008Q1

REPORT INFORMATION
  Report Type: 
  Country: None (occurrence: None)
  Receive Date: 20080319
  Receipt Date: 20080110
  Transmission Date: 20080703
  Serious: No
  Sender: FDA-Public Use
  Company Number: US-KINGPHARMUSA00001-K200800035

PATIENT

DRUGS (2)
  1. ALTACE [Suspect]
     Indication: HYPERTENSION
     Dosage: 10 MG, QD
     Route: 048
     Dates: start: 20070622, end: 20070701
  2. ALTACE [Suspect]
     Dosage: 5 MG (1/2 10 MG CAPSULE), QD
     Route: 048
     Dates: start: 20070702

REACTIONS (1)
  - HYPERTENSION [None]
